FAERS Safety Report 7077998-9 (Version None)
Quarter: 2010Q4

REPORT INFORMATION
  Report Type: 
  Country: None (occurrence: None)
  Receive Date: 20101101
  Receipt Date: 20101026
  Transmission Date: 20110411
  Serious: Yes (Hospitalization, Other)
  Sender: FDA-Public Use
  Company Number: FR-BRISTOL-MYERS SQUIBB COMPANY-15242589

PATIENT
  Age: 75 Year
  Sex: Female

DRUGS (5)
  1. COUMADIN [Suspect]
     Indication: ATRIAL FIBRILLATION
     Route: 048
     Dates: start: 20100301, end: 20100605
  2. CEFIXIME [Interacting]
     Indication: URINARY TRACT INFECTION
     Route: 048
     Dates: start: 20100531
  3. DIGITALINE NATIVELLE [Concomitant]
     Indication: ATRIAL FIBRILLATION
     Dosage: 1 TABLET ORALLY
     Route: 048
     Dates: start: 20100301, end: 20100607
  4. CORDARONE [Concomitant]
     Indication: ATRIAL FIBRILLATION
     Route: 048
     Dates: start: 20100301
  5. LASIX [Concomitant]
     Dosage: 1 TABLET
     Route: 048

REACTIONS (7)
  - ABDOMINAL PAIN UPPER [None]
  - BRADYCARDIA [None]
  - DECREASED APPETITE [None]
  - DRUG INTERACTION [None]
  - HAEMATURIA [None]
  - INTERNATIONAL NORMALISED RATIO INCREASED [None]
  - NAUSEA [None]
